FAERS Safety Report 4470566-4 (Version None)
Quarter: 2004Q4

REPORT INFORMATION
  Report Type: 
  Country: None (occurrence: None)
  Receive Date: 20041005
  Receipt Date: 20040927
  Transmission Date: 20050328
  Serious: Yes (Other)
  Sender: FDA-Public Use
  Company Number: US-2004-032537

PATIENT
  Age: 53 Year
  Sex: Male

DRUGS (1)
  1. ULTRAVIST 300 [Suspect]
     Indication: COMPUTERISED TOMOGRAM ABDOMEN
     Dosage: 140 ML, 1 DOSE, INTRAVENOUS
     Route: 042
     Dates: start: 20040924, end: 20040924

REACTIONS (3)
  - AGITATION [None]
  - CONTRAST MEDIA REACTION [None]
  - RED MAN SYNDROME [None]
